FAERS Safety Report 8508986-0 (Version None)
Quarter: 2012Q3

REPORT INFORMATION
  Report Type: 
  Country: None (occurrence: None)
  Receive Date: 20120702
  Receipt Date: 20120523
  Transmission Date: 20120928
  Serious: Yes (Death, Hospitalization)
  Sender: FDA-Public Use
  Company Number: WAES 1205USA00607

PATIENT
  Age: 68 Year
  Sex: Male

DRUGS (9)
  1. ASPIRIN [Concomitant]
  2. PLACEBO [Suspect]
     Indication: ACUTE CORONARY SYNDROME
     Route: 048
     Dates: start: 20060517
  3. HYDROCHLOROTHIAZIDE [Concomitant]
  4. METOPROLOL SUCCINATE [Concomitant]
  5. RAMIPRIL [Concomitant]
  6. TAB VYTORIN (EZETIMIBE (+) SIMVASTATIN) [Suspect]
     Indication: ACUTE CORONARY SYNDROME
     Dosage: 10-40 MG/DAILY
     Route: 048
     Dates: start: 20060517
  7. IMIPRANINE HCL [Concomitant]
  8. WARFARIN SODIUM [Concomitant]
  9. PLACEBO [Suspect]
     Indication: ACUTE CORONARY SYNDROME
     Dosage: PO
     Route: 048
     Dates: start: 20060517

REACTIONS (3)
  - PNEUMONIA [None]
  - HEPATORENAL SYNDROME [None]
  - MALIGNANT HEPATOBILIARY NEOPLASM [None]
